FAERS Safety Report 8110763-X (Version None)
Quarter: 2012Q1

REPORT INFORMATION
  Report Type: 
  Country: None (occurrence: None)
  Receive Date: 20120203
  Receipt Date: 20111215
  Transmission Date: 20120608
  Serious: No
  Sender: FDA-Public Use
  Company Number: US-GLAXOSMITHKLINE-A0958310A

PATIENT
  Sex: Female

DRUGS (2)
  1. NAPROXEN (ALEVE) [Concomitant]
  2. HORIZANT [Suspect]
     Indication: NEURALGIA
     Route: 065

REACTIONS (2)
  - OFF LABEL USE [None]
  - THERAPEUTIC RESPONSE UNEXPECTED [None]
